FAERS Safety Report 17437478 (Version 1)
Quarter: 2020Q1

REPORT INFORMATION
  Report Type: Spontaneous
  Country: US (occurrence: US)
  Receive Date: 20200219
  Receipt Date: 20200219
  Transmission Date: 20200409
  Serious: No
  Sender: FDA-Public Use
  Company Number: US-ARBOR PHARMACEUTICALS, LLC-US-2020ARB000044

PATIENT
  Age: 49 Year
  Sex: Male

DRUGS (1)
  1. TESTOSTERONE CYPIONATE. [Suspect]
     Active Substance: TESTOSTERONE CYPIONATE
     Indication: PRODUCT USED FOR UNKNOWN INDICATION
     Dosage: 1.5 ML, EVERY TWO WEEKS
     Route: 030

REACTIONS (4)
  - Product deposit [Unknown]
  - Liquid product physical issue [Unknown]
  - Incorrect product administration duration [Unknown]
  - Product dose omission [Unknown]

NARRATIVE: CASE EVENT DATE: 20191225
